FAERS Safety Report 23994756 (Version 1)
Quarter: 2024Q2

REPORT INFORMATION
  Report Type: Spontaneous
  Country: US (occurrence: US)
  Receive Date: 20240620
  Receipt Date: 20240620
  Transmission Date: 20240716
  Serious: No
  Sender: FDA-Public Use
  Company Number: US-Merck Healthcare KGaA-2024032590

PATIENT
  Age: 38 Year
  Sex: Female

DRUGS (1)
  1. MAVENCLAD [Suspect]
     Active Substance: CLADRIBINE
     Indication: Multiple sclerosis
     Route: 048

REACTIONS (4)
  - Fatigue [Not Recovered/Not Resolved]
  - Respiratory symptom [Recovered/Resolved]
  - Pyrexia [Unknown]
  - Nausea [Unknown]
